FAERS Safety Report 5866965-6 (Version None)
Quarter: 2008Q3

REPORT INFORMATION
  Report Type: 
  Country: None (occurrence: None)
  Receive Date: 20080827
  Receipt Date: 20080811
  Transmission Date: 20090109
  Serious: Yes (Other)
  Sender: FDA-Public Use
  Company Number: 1000000646

PATIENT
  Age: 44 Year
  Sex: Female

DRUGS (5)
  1. CITALOPRAM HYDROBROMIDE [Suspect]
     Indication: ANXIETY
     Dosage: ORAL
     Route: 048
  2. PROPOFOL [Suspect]
     Dosage: 15-25 ML/HR, INTRAVENOUS
     Route: 042
  3. MIDAZOLAM HCL [Suspect]
     Dosage: 4 MG, INTRAVENOUS BOLUS
     Route: 040
  4. SOLU-MEDROL [Suspect]
     Dosage: 125 MG
  5. CEFOXITIN [Suspect]
     Dosage: 1 GM

REACTIONS (3)
  - DENTAL OPERATION [None]
  - DRUG INTERACTION [None]
  - RESTLESS LEGS SYNDROME [None]
